FAERS Safety Report 19441027 (Version 7)
Quarter: 2022Q4

REPORT INFORMATION
  Report Type: Other
  Country: DE (occurrence: None)
  Receive Date: 20210621
  Receipt Date: 20221020
  Transmission Date: 20230113
  Serious: Yes (Hospitalization, Other)
  Sender: FDA-Public Use
  Company Number: DE-ROCHE-2183622

PATIENT
  Sex: Female

DRUGS (14)
  1. OCREVUS [Suspect]
     Active Substance: OCRELIZUMAB
     Indication: Relapsing-remitting multiple sclerosis
     Route: 042
     Dates: start: 20180830, end: 20180830
  2. OCREVUS [Suspect]
     Active Substance: OCRELIZUMAB
     Route: 042
     Dates: start: 20180913
  3. OCREVUS [Suspect]
     Active Substance: OCRELIZUMAB
     Route: 042
     Dates: start: 20190314
  4. OCREVUS [Suspect]
     Active Substance: OCRELIZUMAB
     Route: 042
     Dates: start: 20190916
  5. OCREVUS [Suspect]
     Active Substance: OCRELIZUMAB
     Dosage: 182 DAYS
     Route: 042
     Dates: start: 20220316
  6. DULOXETINE [Suspect]
     Active Substance: DULOXETINE
     Indication: Product used for unknown indication
     Dosage: 0-0-1
     Route: 065
  7. CORTISONE [Suspect]
     Active Substance: CORTISONE
     Indication: Premedication
     Route: 065
  8. CORTISONE [Suspect]
     Active Substance: CORTISONE
     Dosage: FOR 4 DAYS
     Route: 065
     Dates: start: 20191201
  9. CALCIUM [Suspect]
     Active Substance: CALCIUM
     Indication: Product used for unknown indication
     Route: 065
     Dates: end: 20190419
  10. CHOLECALCIFEROL [Concomitant]
     Active Substance: CHOLECALCIFEROL
  11. TIOTROPIUM BROMIDE [Concomitant]
     Active Substance: TIOTROPIUM BROMIDE
     Dosage: IN THE MORNING
  12. OXAZEPAM [Concomitant]
     Active Substance: OXAZEPAM
     Dosage: AS REQUIRED
  13. IBANDRONIC ACID [Concomitant]
     Active Substance: IBANDRONIC ACID
  14. DIAZEPAM [Concomitant]
     Active Substance: DIAZEPAM
     Dosage: AS REQUIRED

REACTIONS (33)
  - Aggression [Recovered/Resolved]
  - Disturbance in attention [Recovered/Resolved]
  - Nervousness [Recovered/Resolved]
  - Initial insomnia [Recovered/Resolved]
  - Palpitations [Not Recovered/Not Resolved]
  - Emphysema [Not Recovered/Not Resolved]
  - Migraine [Recovered/Resolved]
  - Muscle spasms [Recovered/Resolved]
  - Myalgia [Recovered/Resolved]
  - Hyperhidrosis [Recovered/Resolved]
  - Dizziness [Recovered/Resolved]
  - Nausea [Recovered/Resolved]
  - Vomiting [Recovered/Resolved]
  - Dyspnoea [Recovered/Resolved]
  - Hyperventilation [Recovered/Resolved]
  - Nasopharyngitis [Recovered/Resolved]
  - Paranasal sinus discomfort [Recovered/Resolved]
  - Vocal cord leukoplakia [Recovered/Resolved]
  - Groin abscess [Recovered/Resolved]
  - Asthenia [Recovering/Resolving]
  - Apathy [Not Recovered/Not Resolved]
  - Pelvic pain [Not Recovered/Not Resolved]
  - Ataxia [Not Recovered/Not Resolved]
  - Constipation [Recovered/Resolved]
  - Abdominal distension [Recovered/Resolved]
  - Back pain [Not Recovered/Not Resolved]
  - Blood urine present [Recovered/Resolved]
  - Pruritus [Recovered/Resolved]
  - Cystitis noninfective [Recovered/Resolved]
  - Fracture [Recovered/Resolved]
  - Fall [Unknown]
  - Visual impairment [Recovered/Resolved]
  - Pulpitis dental [Recovered/Resolved]

NARRATIVE: CASE EVENT DATE: 20180830
